FAERS Safety Report 4555195-6 (Version None)
Quarter: 2005Q1

REPORT INFORMATION
  Report Type: 
  Country: None (occurrence: None)
  Receive Date: 20050118
  Receipt Date: 20050111
  Transmission Date: 20050727
  Serious: Yes (Death, Life-Threatening, Hospitalization, Disabling)
  Sender: FDA-Public Use
  Company Number: US-MERCK-0501USA00969

PATIENT
  Age: 79 Year
  Sex: Male

DRUGS (2)
  1. VIOXX [Suspect]
     Route: 048
     Dates: end: 20040101
  2. OXYGEN [Concomitant]
     Route: 055

REACTIONS (2)
  - FUNGAL INFECTION [None]
  - MYOCARDIAL INFARCTION [None]
